FAERS Safety Report 5248818-X (Version None)
Quarter: 2007Q1

REPORT INFORMATION
  Report Type: 
  Country: None (occurrence: None)
  Receive Date: 20070228
  Receipt Date: 20060403
  Transmission Date: 20070707
  Serious: No
  Sender: FDA-Public Use
  Company Number: US-GLAXOSMITHKLINE-A0594690A

PATIENT
  Age: 35 Year
  Sex: Female

DRUGS (2)
  1. VALTREX [Suspect]
     Dosage: 500MG PER DAY
     Route: 048
     Dates: start: 20050901
  2. ORTHO-NOVUM 7/7/7-21 [Concomitant]
     Indication: CONTRACEPTION
     Dosage: 1TAB PER DAY
     Route: 048
     Dates: start: 20020201

REACTIONS (5)
  - ADNEXA UTERI PAIN [None]
  - BACK PAIN [None]
  - DIARRHOEA [None]
  - DYSURIA [None]
  - PHARMACEUTICAL PRODUCT COMPLAINT [None]
